FAERS Safety Report 15546371 (Version 2)
Quarter: 2021Q3

REPORT INFORMATION
  Report Type: Spontaneous
  Country: US (occurrence: US)
  Receive Date: 20181024
  Receipt Date: 20210913
  Transmission Date: 20211014
  Serious: Yes (Disabling, Other)
  Sender: FDA-Public Use
  Company Number: US-TEVA-2018-US-967236

PATIENT
  Age: 63 Year
  Sex: Female

DRUGS (18)
  1. CARBOPLATIN. [Suspect]
     Active Substance: CARBOPLATIN
     Indication: BREAST CANCER FEMALE
     Dosage: DOSAGE: EVERY 21 DAYS 6 CYCLES
     Route: 042
     Dates: start: 20141121, end: 20150313
  2. PRAVASTATIN. [Concomitant]
     Active Substance: PRAVASTATIN
     Dosage: 80 MILLIGRAM DAILY;
     Route: 065
     Dates: start: 2013
  3. CENTRUM SILVER [Concomitant]
     Active Substance: MINERALS\VITAMINS
     Dosage: DAILY
     Route: 065
  4. COMPAZINE [Concomitant]
     Active Substance: PROCHLORPERAZINE MALEATE
     Dosage: DOSAGE: 10 MG EVERY 6 HOURS AS NEEDED
     Route: 048
  5. DOCETAXEL SAGENT [Suspect]
     Active Substance: DOCETAXEL
     Indication: BREAST CANCER FEMALE
     Dosage: DOSAGE:150 MG EVERY THREE WEEKS 6 CYCLES
     Route: 042
     Dates: start: 20141121, end: 20150313
  6. ZOFRAN [Concomitant]
     Active Substance: ONDANSETRON HYDROCHLORIDE
     Dosage: DOSAGE: 8 MG EVERY 8HOURS AS NEEDED
     Route: 048
  7. FENOFIBRATE. [Concomitant]
     Active Substance: FENOFIBRATE
     Dosage: 145 MILLIGRAM DAILY;
     Route: 065
     Dates: start: 2013, end: 2017
  8. TYLENOL [Concomitant]
     Active Substance: ACETAMINOPHEN
     Dosage: DOSAGE: 650 MG
     Route: 048
  9. NEULASTA [Concomitant]
     Active Substance: PEGFILGRASTIM
     Dosage: DOSAGE: 6MG
     Route: 058
  10. ZANTAC [Concomitant]
     Active Substance: RANITIDINE HYDROCHLORIDE
     Route: 065
  11. EMLA [Concomitant]
     Active Substance: LIDOCAINE\PRILOCAINE
     Route: 065
  12. MULTIVITAMIN [Concomitant]
     Active Substance: VITAMINS
     Route: 065
  13. HERCEPTIN [Suspect]
     Active Substance: TRASTUZUMAB
     Indication: BREAST CANCER FEMALE
     Dosage: DOSAGE: 6MG/KG EVERY 21 DAYS FOR 52 WEEKS
     Route: 042
     Dates: start: 20141121, end: 20151120
  14. DILTIAZEM. [Concomitant]
     Active Substance: DILTIAZEM
     Dosage: 180 MILLIGRAM DAILY;
     Route: 065
     Dates: start: 2013
  15. DECADRON [Concomitant]
     Active Substance: DEXAMETHASONE
     Dosage: DOSAGE: 4MG,  2 BID
     Route: 048
  16. DIPHENHYDRAMINE. [Concomitant]
     Active Substance: DIPHENHYDRAMINE
     Dosage: DOSAGE: 50 MG
     Route: 048
  17. LEVOTHYROXINE. [Concomitant]
     Active Substance: LEVOTHYROXINE
     Indication: THYROID DISORDER
     Dosage: 50 MICROGRAM DAILY;
     Route: 065
     Dates: start: 2013
  18. LETROZOLE. [Concomitant]
     Active Substance: LETROZOLE
     Dosage: 2.5 MILLIGRAM DAILY;
     Route: 048
     Dates: start: 2014

REACTIONS (9)
  - Lacrimation increased [Unknown]
  - Alopecia areata [Not Recovered/Not Resolved]
  - Anaemia [Unknown]
  - Pain in extremity [Unknown]
  - Leukopenia [Unknown]
  - Madarosis [Not Recovered/Not Resolved]
  - Thrombocytopenia [Unknown]
  - Hair texture abnormal [Not Recovered/Not Resolved]
  - Hair colour changes [Not Recovered/Not Resolved]

NARRATIVE: CASE EVENT DATE: 201411
